FAERS Safety Report 13145200 (Version 1)
Quarter: 2017Q1

REPORT INFORMATION
  Report Type: Spontaneous
  Country: US (occurrence: US)
  Receive Date: 20170124
  Receipt Date: 20170124
  Transmission Date: 20170428
  Serious: Yes (Hospitalization, Other)
  Sender: FDA-Public Use
  Company Number: US-ELI_LILLY_AND_COMPANY-US201607013718

PATIENT
  Sex: Female

DRUGS (6)
  1. CYMBALTA [Suspect]
     Active Substance: DULOXETINE HYDROCHLORIDE
     Indication: PRODUCT USED FOR UNKNOWN INDICATION
     Dosage: UNK, UNKNOWN
     Route: 065
  2. CYMBALTA [Suspect]
     Active Substance: DULOXETINE HYDROCHLORIDE
     Dosage: 20 MG, UNKNOWN
     Route: 065
  3. FENTANYL. [Suspect]
     Active Substance: FENTANYL
     Indication: PRODUCT USED FOR UNKNOWN INDICATION
     Dosage: UNK, UNKNOWN
     Route: 065
     Dates: end: 20130815
  4. CYMBALTA [Suspect]
     Active Substance: DULOXETINE HYDROCHLORIDE
     Dosage: 60 MG, QD
     Route: 065
  5. CYMBALTA [Suspect]
     Active Substance: DULOXETINE HYDROCHLORIDE
     Dosage: UNK UNK, UNKNOWN
     Route: 065
     Dates: end: 20130815
  6. OXYCODONE [Concomitant]
     Active Substance: OXYCODONE
     Indication: PRODUCT USED FOR UNKNOWN INDICATION
     Dosage: UNK, OTHER
     Route: 065

REACTIONS (24)
  - Agitation [Unknown]
  - Pressure of speech [Unknown]
  - Paraesthesia [Unknown]
  - Headache [Unknown]
  - Dysphoria [Unknown]
  - Restlessness [Unknown]
  - Drug withdrawal syndrome [Unknown]
  - Pain [Unknown]
  - Formication [Unknown]
  - Confusional state [Unknown]
  - Back pain [Unknown]
  - Hyperhidrosis [Unknown]
  - Anxiety [Unknown]
  - Suicidal ideation [Unknown]
  - Affect lability [Unknown]
  - Vomiting [Unknown]
  - Dizziness [Unknown]
  - Insomnia [Unknown]
  - Night sweats [Unknown]
  - Fatigue [Unknown]
  - Irritability [Unknown]
  - Nausea [Unknown]
  - Lethargy [Unknown]
  - Feeling jittery [Unknown]
